FAERS Safety Report 4944012-8 (Version None)
Quarter: 2006Q1

REPORT INFORMATION
  Report Type: 
  Country: None (occurrence: None)
  Receive Date: 20060310
  Receipt Date: 20060301
  Transmission Date: 20060701
  Serious: Yes (Hospitalization)
  Sender: FDA-Public Use
  Company Number: 2006032514

PATIENT
  Age: 55 Year
  Sex: Female

DRUGS (1)
  1. LYRICA [Suspect]
     Indication: ILL-DEFINED DISORDER
     Dosage: 150 MG (50 MG, 3 IN 1 D); UNKNOWN

REACTIONS (5)
  - BLOOD GLUCOSE DECREASED [None]
  - DIFFICULTY IN WALKING [None]
  - FATIGUE [None]
  - ORAL INTAKE REDUCED [None]
  - SEDATION [None]
